FAERS Safety Report 6212773-6 (Version None)
Quarter: 2009Q2

REPORT INFORMATION
  Report Type: 
  Country: None (occurrence: None)
  Receive Date: 20090601
  Receipt Date: 20090521
  Transmission Date: 20091009
  Serious: Yes (Hospitalization)
  Sender: FDA-Public Use
  Company Number: AE-2009-058

PATIENT
  Age: 89 Year
  Sex: Female
  Weight: 58 kg

DRUGS (11)
  1. HYDROCHLOROTHIAZIDE [Suspect]
     Indication: HYPERTENSION
     Dosage: ORAL
     Route: 048
     Dates: start: 20090220, end: 20090325
  2. CIPROFLOXACIN [Suspect]
     Indication: BACTERIAL INFECTION
     Dosage: ORAL
     Route: 048
     Dates: start: 20090220, end: 20090304
  3. AMLODIPINE [Concomitant]
  4. ACETYLSALICYLIC ACID SRT [Concomitant]
  5. FOLIC ACID [Concomitant]
  6. METOCLOPRAMIDE HYDROCHLORIDE [Concomitant]
  7. ENOXAPARIN SODIUM [Concomitant]
  8. PANTOPRAZOLE SODIUM [Concomitant]
  9. SACCHAROMYCES BOULARDII [Concomitant]
  10. RAMIPRIL [Concomitant]
  11. VITAMIN B1, REIN AND IN COMBINATION WITH VITAMIN B6 AND VITAMIN B12 [Concomitant]

REACTIONS (2)
  - DEHYDRATION [None]
  - GASTROENTERITIS CLOSTRIDIAL [None]
